FAERS Safety Report 23144582 (Version 1)
Quarter: 2023Q4

REPORT INFORMATION
  Report Type: Spontaneous
  Country: GB (occurrence: None)
  Receive Date: 20231103
  Receipt Date: 20231103
  Transmission Date: 20240110
  Serious: Yes (Hospitalization)
  Sender: FDA-Public Use
  Company Number: 2023A245200

PATIENT
  Age: 68 Year
  Sex: Male

DRUGS (12)
  1. DAPAGLIFLOZIN [Suspect]
     Active Substance: DAPAGLIFLOZIN
     Dosage: 10
     Route: 048
  2. LANTUS [Concomitant]
     Active Substance: INSULIN GLARGINE
     Dosage: 100UNITS/ML SOLUTION FOR INJECTION 3ML PRE-FILLED SOLOSTAR PENS - 30 UNITS AT 2PM
  3. NOVORAPID [Concomitant]
     Active Substance: INSULIN ASPART
     Dosage: FLEXPEN 100UNITS/ML SOLUTION FOR INJECTION 3ML PRE-FILLED PENS - 8 UNITS WITH MEALS
  4. OMEPRAZOLE [Concomitant]
     Active Substance: OMEPRAZOLE
     Dosage: 20
  5. LINAGLIPTIN [Concomitant]
     Active Substance: LINAGLIPTIN
     Dosage: 5
  6. BUMETANIDE [Concomitant]
     Active Substance: BUMETANIDE
     Dosage: 1
  7. EPLERENONE [Concomitant]
     Active Substance: EPLERENONE
     Dosage: 25
  8. ATORVASTATIN [Concomitant]
     Active Substance: ATORVASTATIN
     Dosage: 40
  9. CODEINE [Concomitant]
     Active Substance: CODEINE
     Dosage: 1-2 FOUR TIMES A DAY
  10. NEBIVOLOL [Concomitant]
     Active Substance: NEBIVOLOL
     Dosage: 2.5
  11. EDOXABAN [Concomitant]
     Active Substance: EDOXABAN
     Dosage: 60
  12. METFORMIN [Concomitant]
     Active Substance: METFORMIN HYDROCHLORIDE
     Dosage: IN MORNING AND AT NIGHT ,500

REACTIONS (1)
  - Gangrene [Recovered/Resolved with Sequelae]
